FAERS Safety Report 10930452 (Version 2)
Quarter: 2015Q2

REPORT INFORMATION
  Report Type: Spontaneous
  Country: US (occurrence: None)
  Receive Date: 20150317
  Receipt Date: 20150407
  Transmission Date: 20150821
  Serious: Yes (Life-Threatening, Hospitalization, Other)
  Sender: FDA-Public Use
  Company Number: 20150130

PATIENT
  Age: 79 Year
  Sex: Male
  Weight: 87 kg

DRUGS (14)
  1. ZEMPLAR [Concomitant]
     Active Substance: PARICALCITOL
  2. METOPROLOL [Concomitant]
     Active Substance: METOPROLOL
  3. CALCITRIOL. [Concomitant]
     Active Substance: CALCITRIOL
  4. WARFARIN [Concomitant]
     Active Substance: WARFARIN
  5. VIAGRA [Concomitant]
     Active Substance: SILDENAFIL CITRATE
  6. EPOGEN [Concomitant]
     Active Substance: ERYTHROPOIETIN
  7. GLIMEPIRIDE. [Concomitant]
     Active Substance: GLIMEPIRIDE
  8. LETHARTIN [Concomitant]
  9. ALLOPURINOL. [Concomitant]
     Active Substance: ALLOPURINOL
  10. COZAAR (LOSARTAN) [Concomitant]
  11. RENAL SOFTGET [Concomitant]
  12. VENOFER [Suspect]
     Active Substance: IRON SUCROSE
     Indication: IRON DEFICIENCY ANAEMIA
     Dates: start: 20150214, end: 20150221
  13. HEPARIN [Concomitant]
     Active Substance: HEPARIN SODIUM
  14. SODIUM BICARBONATE. [Concomitant]
     Active Substance: SODIUM BICARBONATE

REACTIONS (6)
  - Hypomagnesaemia [None]
  - Aspartate aminotransferase abnormal [None]
  - Tachycardia [None]
  - Blood phosphorus increased [None]
  - Diastolic dysfunction [None]
  - Atrial fibrillation [None]

NARRATIVE: CASE EVENT DATE: 19350630
